FAERS Safety Report 21594587 (Version 1)
Quarter: 2022Q4

REPORT INFORMATION
  Report Type: Spontaneous
  Country: US (occurrence: US)
  Receive Date: 20221115
  Receipt Date: 20221115
  Transmission Date: 20230113
  Serious: No
  Sender: FDA-Public Use
  Company Number: US-Accord-276599

PATIENT
  Sex: Female
  Weight: 57.15 kg

DRUGS (1)
  1. SPIRONOLACTONE [Suspect]
     Active Substance: SPIRONOLACTONE
     Indication: Acne
     Dosage: 100MG ,BY MOUTH, ONCE A DAY

REACTIONS (6)
  - Pruritus [Unknown]
  - Swelling [Unknown]
  - Diarrhoea [Unknown]
  - Acne [Unknown]
  - Food allergy [Unknown]
  - Off label use [Unknown]
